FAERS Safety Report 15882666 (Version 1)
Quarter: 2019Q1

REPORT INFORMATION
  Report Type: Spontaneous
  Country: SE (occurrence: SE)
  Receive Date: 20190129
  Receipt Date: 20190129
  Transmission Date: 20190417
  Serious: Yes (Other)
  Sender: FDA-Public Use
  Company Number: SE-ORION CORPORATION ORION PHARMA-19_00005281

PATIENT
  Sex: Female

DRUGS (2)
  1. METHOTREXATE (TRADE NAME UNKNOWN) [Suspect]
     Active Substance: METHOTREXATE
     Indication: TEMPORAL ARTERITIS
     Route: 065
     Dates: end: 201811
  2. PREDNISOLONE. [Concomitant]
     Active Substance: PREDNISOLONE
     Route: 065

REACTIONS (2)
  - Migraine [Unknown]
  - Product use in unapproved indication [Unknown]
